FAERS Safety Report 8888321 (Version 1)
Quarter: 2012Q4

REPORT INFORMATION
  Report Type: 
  Country: US (occurrence: US)
  Receive Date: 20121106
  Receipt Date: 20121106
  Transmission Date: 20130627
  Serious: Yes (Other)
  Sender: FDA-Public Use
  Company Number: US-BAYER-2012-113688

PATIENT
  Age: 19 Year
  Sex: Female

DRUGS (1)
  1. MIRENA [Suspect]
     Dosage: 20 mcg/24hr, CONT
     Route: 015
     Dates: start: 201208

REACTIONS (5)
  - Vaginal haemorrhage [None]
  - Hypersensitivity [None]
  - Dermatitis allergic [None]
  - Abdominal pain lower [None]
  - Nausea [None]
